FAERS Safety Report 9772410 (Version 1)
Quarter: 2013Q4

REPORT INFORMATION
  Report Type: Spontaneous
  Country: JP (occurrence: JP)
  Receive Date: 20131219
  Receipt Date: 20131219
  Transmission Date: 20140711
  Serious: Yes (Death)
  Sender: FDA-Public Use
  Company Number: JP-CELGENEUS-087-50794-13123048

PATIENT
  Age: 67 Year
  Sex: Female

DRUGS (2)
  1. VIDAZA [Suspect]
     Indication: MYELODYSPLASTIC SYNDROME
     Route: 065
     Dates: start: 20130508, end: 201305
  2. VIDAZA [Suspect]
     Indication: PANCYTOPENIA

REACTIONS (2)
  - Bone marrow necrosis [Fatal]
  - Respiratory failure [Fatal]
